FAERS Safety Report 17462129 (Version 1)
Quarter: 2020Q1

REPORT INFORMATION
  Report Type: Spontaneous
  Country: US (occurrence: US)
  Receive Date: 20200226
  Receipt Date: 20200226
  Transmission Date: 20200409
  Serious: No
  Sender: FDA-Public Use
  Company Number: US-HETERO-HET2020US00213

PATIENT
  Age: 84 Year
  Sex: Male
  Weight: 53 kg

DRUGS (1)
  1. LEVOFLOXACIN. [Suspect]
     Active Substance: LEVOFLOXACIN
     Indication: PNEUMONIA
     Dosage: 750 MG, QD (ONE TABLET PER DAY)
     Route: 065
     Dates: start: 20200211, end: 20200213

REACTIONS (3)
  - Confusional state [Recovered/Resolved]
  - Gastric disorder [Recovered/Resolved]
  - Feeling abnormal [Recovered/Resolved]

NARRATIVE: CASE EVENT DATE: 20200211
